FAERS Safety Report 4724365-6 (Version None)
Quarter: 2005Q3

REPORT INFORMATION
  Report Type: 
  Country: None (occurrence: None)
  Receive Date: 20050721
  Receipt Date: 20050712
  Transmission Date: 20060218
  Serious: Yes (Hospitalization)
  Sender: FDA-Public Use
  Company Number: SE-2005-013767

PATIENT
  Age: 47 Year
  Sex: Female

DRUGS (1)
  1. LEVONORGESTREL [Suspect]
     Indication: MENORRHAGIA
     Dosage: 20 ?G,/DAY, CONT, INTRA-UTERINE
     Route: 015
     Dates: start: 19950101, end: 20041101

REACTIONS (1)
  - BREAST CANCER FEMALE [None]
